FAERS Safety Report 26059917 (Version 1)
Quarter: 2025Q4

REPORT INFORMATION
  Report Type: Spontaneous
  Country: US (occurrence: None)
  Receive Date: 20251118
  Receipt Date: 20251118
  Transmission Date: 20260117
  Serious: No
  Sender: FDA-CTU
  Company Number: None

PATIENT
  Sex: Female

DRUGS (2)
  1. ELTROMBOPAG [Suspect]
     Active Substance: ELTROMBOPAG
     Indication: Pulmonary arterial hypertension
     Dosage: 12.5 MG DAILY ORAL ?
     Route: 048
     Dates: start: 20250925
  2. UPTRAVI [Suspect]
     Active Substance: SELEXIPAG

REACTIONS (3)
  - Red blood cell count decreased [None]
  - Platelet count decreased [None]
  - Diarrhoea [None]
